FAERS Safety Report 25287485 (Version 2)
Quarter: 2025Q4

REPORT INFORMATION
  Report Type: Spontaneous
  Country: EU (occurrence: EU)
  Receive Date: 20250509
  Receipt Date: 20251230
  Transmission Date: 20260118
  Serious: No
  Sender: Harrow Health
  Company Number: EU-HARROW-HAR-2025-IT-00028

PATIENT
  Age: 72 Year
  Sex: Female

DRUGS (4)
  1. VERKAZIA [Suspect]
     Active Substance: CYCLOSPORINE
     Indication: Keratitis
     Dosage: 1 MG/ML 0.3 MG 0.3 ML: 1 DROP/DAY
     Route: 031
  2. CHOLECALCIFEROL [Concomitant]
     Active Substance: CHOLECALCIFEROL
     Route: 048
     Dates: start: 2014
  3. PREDNISONE [Concomitant]
     Active Substance: PREDNISONE
     Dosage: UNK
     Route: 048
     Dates: start: 202404
  4. PROLIA [Concomitant]
     Active Substance: DENOSUMAB
     Indication: Osteoporosis
     Dosage: PROLIA*1 SYRINGE SC 60 MG 1 ML: 1 SYRINGE/6 MONTHS (60 MG)
     Route: 058

REACTIONS (4)
  - Dry eye [Recovering/Resolving]
  - Ocular hyperaemia [Recovering/Resolving]
  - Eye pain [Recovering/Resolving]
  - Drug ineffective [Unknown]

NARRATIVE: CASE EVENT DATE: 20250201
